FAERS Safety Report 8957500 (Version 1)
Quarter: 2012Q4

REPORT INFORMATION
  Report Type: 
  Country: US (occurrence: US)
  Receive Date: 20121211
  Receipt Date: 20121211
  Transmission Date: 20130627
  Serious: Yes (Hospitalization, Other)
  Sender: FDA-Public Use
  Company Number: US-SANOFI-AVENTIS-2012SA088726

PATIENT
  Sex: Male

DRUGS (3)
  1. LANTUS SOLOSTAR [Suspect]
     Indication: TYPE II DIABETES MELLITUS
     Route: 058
  2. SOLOSTAR [Suspect]
     Indication: TYPE II DIABETES MELLITUS
  3. NOVOLOG [Suspect]
     Route: 065

REACTIONS (2)
  - Cardiac arrest [Recovered/Resolved]
  - Generalised oedema [Recovered/Resolved]
